FAERS Safety Report 19932915 (Version 1)
Quarter: 2021Q4

REPORT INFORMATION
  Report Type: Report from Study
  Country: US (occurrence: US)
  Receive Date: 20211008
  Receipt Date: 20211008
  Transmission Date: 20220303
  Serious: Yes (Disabling)
  Sender: FDA-Public Use
  Company Number: US-SANOFI-00794601

PATIENT
  Age: 54 Year
  Sex: Male

DRUGS (2)
  1. TERIFLUNOMIDE [Suspect]
     Active Substance: TERIFLUNOMIDE
     Indication: Multiple sclerosis
     Dosage: 14 MG, QD
     Route: 048
     Dates: start: 20180725
  2. COPAXONE [Concomitant]
     Active Substance: GLATIRAMER ACETATE
     Dosage: UNK
     Dates: end: 201807

REACTIONS (2)
  - Gait disturbance [Not Recovered/Not Resolved]
  - Condition aggravated [Not Recovered/Not Resolved]
